FAERS Safety Report 6551865-9 (Version None)
Quarter: 2010Q1

REPORT INFORMATION
  Report Type: 
  Country: None (occurrence: None)
  Receive Date: 20100126
  Receipt Date: 20100120
  Transmission Date: 20100710
  Serious: Yes (Other)
  Sender: FDA-Public Use
  Company Number: US-ABBOTT-09P-163-0612477-00

PATIENT
  Sex: Male
  Weight: 97.61 kg

DRUGS (6)
  1. HUMIRA [Suspect]
     Indication: PSORIATIC ARTHROPATHY
     Dates: start: 20080101, end: 20091120
  2. HUMIRA [Suspect]
     Dates: start: 20091204
  3. LIPITOR [Concomitant]
     Indication: BLOOD CHOLESTEROL INCREASED
  4. CYMBALTA [Concomitant]
     Indication: ANXIETY
  5. CYMBALTA [Concomitant]
     Indication: DEPRESSION
  6. CYMBALTA [Concomitant]
     Indication: PAIN

REACTIONS (3)
  - FALL [None]
  - PROCEDURAL PAIN [None]
  - ROTATOR CUFF SYNDROME [None]
